FAERS Safety Report 14989868 (Version 3)
Quarter: 2019Q1

REPORT INFORMATION
  Report Type: Report from Study
  Country: US (occurrence: US)
  Receive Date: 20180608
  Receipt Date: 20190104
  Transmission Date: 20190417
  Serious: Yes (Other)
  Sender: FDA-Public Use
  Company Number: PHEH2018US021743

PATIENT
  Sex: Female

DRUGS (1)
  1. GLEEVEC [Suspect]
     Active Substance: IMATINIB MESYLATE
     Indication: CHRONIC MYELOID LEUKAEMIA
     Dosage: UNK
     Route: 065

REACTIONS (13)
  - Nervousness [Unknown]
  - Platelet count increased [Unknown]
  - Second primary malignancy [Unknown]
  - Herpes zoster [Unknown]
  - Dyspnoea [Unknown]
  - Neoplasm malignant [Unknown]
  - Blood viscosity decreased [Unknown]
  - Pain in extremity [Unknown]
  - Memory impairment [Unknown]
  - Cognitive disorder [Unknown]
  - Sciatica [Unknown]
  - Haemorrhage [Unknown]
  - Burning sensation [Unknown]
